FAERS Safety Report 20455086 (Version 1)
Quarter: 2022Q1

REPORT INFORMATION
  Report Type: Other
  Country: DE (occurrence: DE)
  Receive Date: 20220210
  Receipt Date: 20220210
  Transmission Date: 20220423
  Serious: No
  Sender: FDA-Public Use
  Company Number: DE-LUPIN PHARMACEUTICALS INC.-2022-01826

PATIENT
  Age: 38 Year
  Sex: Female
  Weight: 61 kg

DRUGS (3)
  1. DULOXETINE [Suspect]
     Active Substance: DULOXETINE
     Indication: Generalised anxiety disorder
     Dosage: 30 MG, QD
     Route: 048
  2. PROGESTERONE [Concomitant]
     Active Substance: PROGESTERONE
     Indication: Prophylaxis of abortion
     Dosage: 200 MG, QD
     Route: 067
  3. LORA ADGC [Concomitant]
     Indication: Hypersensitivity
     Dosage: 10 MG, QD
     Route: 048

REACTIONS (1)
  - Exposure during pregnancy [Unknown]
